FAERS Safety Report 20367369 (Version 2)
Quarter: 2022Q3

REPORT INFORMATION
  Report Type: Spontaneous
  Country: FR (occurrence: FR)
  Receive Date: 20220124
  Receipt Date: 20220913
  Transmission Date: 20221027
  Serious: Yes (Hospitalization)
  Sender: FDA-Public Use
  Company Number: FR-AFSSAPS-CN20220006

PATIENT
  Age: 19 Year
  Sex: Female

DRUGS (4)
  1. TRAMADOL [Suspect]
     Active Substance: TRAMADOL
     Indication: Toxicity to various agents
     Dosage: 400 MILLIGRAM, ONCE A DAY
     Route: 048
     Dates: start: 20210216, end: 20210216
  2. XANAX [Suspect]
     Active Substance: ALPRAZOLAM
     Indication: Toxicity to various agents
     Dosage: UNK (2 TABLETS, DOSAGE NOT SPECIFIED)
     Route: 048
     Dates: start: 20210216, end: 20210216
  3. VENTOLIN [Concomitant]
     Active Substance: ALBUTEROL SULFATE
     Indication: Asthma
     Dosage: AS NECESSARY
     Route: 065
  4. BECLOMETHASONE DIPROPIONATE [Concomitant]
     Active Substance: BECLOMETHASONE DIPROPIONATE
     Indication: Asthma
     Dosage: AS NECESSARY
     Route: 065

REACTIONS (2)
  - Toxicity to various agents [Recovered/Resolved]
  - Tachycardia [Recovered/Resolved]

NARRATIVE: CASE EVENT DATE: 20210216
